FAERS Safety Report 7624900-4 (Version None)
Quarter: 2011Q3

REPORT INFORMATION
  Report Type: 
  Country: None (occurrence: None)
  Receive Date: 20110720
  Receipt Date: 20110713
  Transmission Date: 20111222
  Serious: Yes (Hospitalization)
  Sender: FDA-Public Use
  Company Number: FR-MERCK-1101FRA00133

PATIENT
  Age: 61 Year
  Sex: Male

DRUGS (6)
  1. JANUMET [Suspect]
     Indication: TYPE 2 DIABETES MELLITUS
     Route: 048
     Dates: start: 20100601
  2. ALISKIREN FUMARATE [Suspect]
     Indication: HYPERTENSION
     Route: 048
     Dates: start: 20100601, end: 20101201
  3. FUROSEMIDE [Concomitant]
     Route: 065
     Dates: end: 20101201
  4. DIGOXIN [Concomitant]
     Route: 048
     Dates: start: 20070101
  5. FLUINDIONE [Concomitant]
     Route: 048
     Dates: start: 20070101, end: 20101201
  6. ASPIRIN AND PRAVASTATIN SODIUM [Concomitant]
     Route: 048
     Dates: start: 20090101

REACTIONS (8)
  - TOXIC SKIN ERUPTION [None]
  - INFLAMMATION [None]
  - RENAL FAILURE [None]
  - PROSTATIC DISORDER [None]
  - GAMMA-GLUTAMYLTRANSFERASE INCREASED [None]
  - PURPURA [None]
  - MUSCULOSKELETAL PAIN [None]
  - ORCHITIS [None]
